FAERS Safety Report 8119133-1 (Version None)
Quarter: 2012Q1

REPORT INFORMATION
  Report Type: 
  Country: None (occurrence: None)
  Receive Date: 20120207
  Receipt Date: 20120207
  Transmission Date: 20120608
  Serious: Yes (Other)
  Sender: FDA-Public Use
  Company Number: None

PATIENT
  Age: 43 Year
  Sex: Female
  Weight: 69.853 kg

DRUGS (1)
  1. CIPROFLOXACIN [Suspect]
     Indication: URINARY TRACT INFECTION
     Dosage: 500MG
     Route: 048
     Dates: start: 20091009, end: 20091012

REACTIONS (10)
  - TENDON PAIN [None]
  - ARTHRALGIA [None]
  - SLEEP DISORDER [None]
  - TRIGEMINAL NEURALGIA [None]
  - BRAIN INJURY [None]
  - EYE IRRITATION [None]
  - AMNESIA [None]
  - MOVEMENT DISORDER [None]
  - QUALITY OF LIFE DECREASED [None]
  - EAR DISCOMFORT [None]
